FAERS Safety Report 18975893 (Version 1)
Quarter: 2021Q1

REPORT INFORMATION
  Report Type: Spontaneous
  Country: US (occurrence: US)
  Receive Date: 20210305
  Receipt Date: 20210305
  Transmission Date: 20210420
  Serious: No
  Sender: FDA-Public Use
  Company Number: US-BAUSCH-BL-2021-004449

PATIENT
  Sex: Female

DRUGS (2)
  1. MURO 128 [Suspect]
     Active Substance: SODIUM CHLORIDE
     Indication: DRY EYE
     Dosage: ONCE NIGHTLY IN BOTH EYES
     Route: 047
     Dates: start: 202101
  2. ERYTHROMYCIN OPHTHALMIC OINTMENT USP 0.5% [Suspect]
     Active Substance: ERYTHROMYCIN
     Indication: DRY EYE
     Dosage: APPROXIMATELY ONE WEEK AGO
     Route: 047
     Dates: start: 202101

REACTIONS (3)
  - Product residue present [Unknown]
  - Visual impairment [Unknown]
  - Accidental exposure to product [Unknown]

NARRATIVE: CASE EVENT DATE: 2021
